FAERS Safety Report 8202156-1 (Version None)
Quarter: 2012Q1

REPORT INFORMATION
  Report Type: 
  Country: None (occurrence: None)
  Receive Date: 20120312
  Receipt Date: 20120229
  Transmission Date: 20120608
  Serious: Yes (Hospitalization)
  Sender: FDA-Public Use
  Company Number: US-PFIZER INC-2011295153

PATIENT
  Sex: Male
  Weight: 78.2 kg

DRUGS (4)
  1. IBUPROFEN [Concomitant]
     Indication: PAIN
     Dosage: 200 MG, AS NEEDED
     Route: 048
     Dates: start: 20110113
  2. LACTOBACILLUS ACIDOPHILUS [Concomitant]
     Indication: SUPPLEMENTATION THERAPY
     Dosage: 1 TABLET, 1X/DAY
     Route: 048
     Dates: start: 20110113
  3. IMODIUM [Concomitant]
     Indication: DIARRHOEA
     Dosage: 2 MG, AS NEEDED
     Route: 048
     Dates: start: 20110224
  4. CRIZOTINIB [Suspect]
     Indication: NON-SMALL CELL LUNG CANCER
     Dosage: 250 MG, 2X/DAY
     Route: 048
     Dates: start: 20110224

REACTIONS (1)
  - DEEP VEIN THROMBOSIS [None]
